FAERS Safety Report 16110986 (Version 1)
Quarter: 2019Q1

REPORT INFORMATION
  Report Type: Spontaneous
  Country: US (occurrence: US)
  Receive Date: 20190325
  Receipt Date: 20190325
  Transmission Date: 20190418
  Serious: No
  Sender: FDA-Public Use
  Company Number: US-TEVA-2019-US-1029448

PATIENT
  Age: 51 Year
  Sex: Female

DRUGS (1)
  1. NIACIN. [Suspect]
     Active Substance: NIACIN
     Route: 065

REACTIONS (2)
  - Hot flush [Unknown]
  - Drug hypersensitivity [Unknown]

NARRATIVE: CASE EVENT DATE: 20190101
